FAERS Safety Report 4431992-2 (Version None)
Quarter: 2004Q3

REPORT INFORMATION
  Report Type: 
  Country: None (occurrence: None)
  Receive Date: 20040819
  Receipt Date: 20040813
  Transmission Date: 20050211
  Serious: Yes (Hospitalization, Other)
  Sender: FDA-Public Use
  Company Number: KII-2004-0012978

PATIENT
  Sex: Male

DRUGS (6)
  1. OXYCONTIN [Suspect]
     Indication: PAIN
     Dosage: ORAL
     Route: 048
  2. ACETAMINOPHEN AND HYDROCODONE BITARTRATE [Suspect]
     Dosage: ORAL
     Route: 048
  3. BENZODIAZEPINES DERIVATIVES () [Suspect]
     Dosage: ORAL
     Route: 048
  4. CLONIDINE [Suspect]
     Dosage: ORAL
     Route: 048
  5. ETHANOL (ETHANOL) [Suspect]
     Dosage: ORAL
     Route: 048
  6. ASPIRIN [Suspect]

REACTIONS (6)
  - BLOOD PRESSURE INCREASED [None]
  - COMA [None]
  - MULTIPLE DRUG OVERDOSE [None]
  - SOMNOLENCE [None]
  - THERAPY NON-RESPONDER [None]
  - TREATMENT NONCOMPLIANCE [None]
